FAERS Safety Report 6607828-8 (Version None)
Quarter: 2010Q1

REPORT INFORMATION
  Report Type: 
  Country: None (occurrence: None)
  Receive Date: 20100212
  Receipt Date: 20091106
  Transmission Date: 20100710
  Serious: No
  Sender: FDA-Public Use
  Company Number: 1000010038

PATIENT
  Age: 89 Year
  Sex: Female

DRUGS (6)
  1. SAVELLA [Suspect]
     Indication: FIBROMYALGIA
     Dates: start: 20091009, end: 20091001
  2. TENORMIN [Concomitant]
  3. NEXIUM [Concomitant]
  4. LYRICA [Concomitant]
  5. NORCO [Concomitant]
  6. VALIUM [Concomitant]

REACTIONS (1)
  - INFLUENZA LIKE ILLNESS [None]
